FAERS Safety Report 14352383 (Version 1)
Quarter: 2018Q1

REPORT INFORMATION
  Report Type: Spontaneous
  Country: US (occurrence: US)
  Receive Date: 20180104
  Receipt Date: 20180104
  Transmission Date: 20180509
  Serious: No
  Sender: FDA-Public Use
  Company Number: US-GLAXOSMITHKLINE-US2018000649

PATIENT
  Age: 47 Year
  Sex: Female

DRUGS (1)
  1. BREO ELLIPTA [Suspect]
     Active Substance: FLUTICASONE FUROATE\VILANTEROL TRIFENATATE
     Indication: BRONCHITIS
     Dosage: 1 PUFF(S), SINGLE
     Route: 055
     Dates: start: 20180102

REACTIONS (6)
  - Product use in unapproved indication [Unknown]
  - Hypersensitivity [Unknown]
  - Anxiety [Unknown]
  - Hyperhidrosis [Unknown]
  - Hyperventilation [Unknown]
  - Off label use [Unknown]

NARRATIVE: CASE EVENT DATE: 20180102
